FAERS Safety Report 7824091-0 (Version None)
Quarter: 2011Q4

REPORT INFORMATION
  Report Type: 
  Country: None (occurrence: None)
  Receive Date: 20111019
  Receipt Date: 20111014
  Transmission Date: 20120403
  Serious: Yes (Death)
  Sender: FDA-Public Use
  Company Number: PHEH2011US05839

PATIENT
  Sex: Male
  Weight: 74.83 kg

DRUGS (10)
  1. CLOZARIL [Suspect]
     Dosage: 2 DF, QHS
  2. CYMBALTA [Concomitant]
     Dosage: 60 MG, QD
  3. GALACTOSE [Concomitant]
  4. HYDROCODONE BITARTRATE [Concomitant]
     Dosage: 750 MG, DAILY
  5. METOPROLOL TARTRATE [Concomitant]
     Dosage: 25 MG, QD
  6. ASPIRIN [Concomitant]
     Dosage: 80 MG, QD
  7. PLAVIX [Concomitant]
     Dosage: 75 MG, QD
  8. CRESTOR [Concomitant]
     Dosage: 40 MG, QD
  9. TAMOXIFEN CITRATE [Concomitant]
     Dosage: 40 MG, QD
  10. STALEVO 100 [Concomitant]
     Dosage: 125 MG, QD

REACTIONS (4)
  - PNEUMONIA [None]
  - RESPIRATORY FAILURE [None]
  - PARKINSON'S DISEASE [None]
  - CARDIO-RESPIRATORY ARREST [None]
